FAERS Safety Report 18162525 (Version 1)
Quarter: 2020Q3

REPORT INFORMATION
  Report Type: Spontaneous
  Country: US (occurrence: US)
  Receive Date: 20200818
  Receipt Date: 20200818
  Transmission Date: 20201103
  Serious: Yes (Other)
  Sender: FDA-Public Use
  Company Number: None

PATIENT
  Age: 16 Year
  Sex: Female
  Weight: 60.75 kg

DRUGS (1)
  1. SMART CARE HAND SANITIZER [Suspect]
     Active Substance: ALCOHOL
     Indication: COVID-19 PROPHYLAXIS
     Dosage: ?          QUANTITY:1 APPLICATION;?
     Route: 061

REACTIONS (3)
  - Nausea [None]
  - Headache [None]
  - Feeding disorder [None]

NARRATIVE: CASE EVENT DATE: 20200815
